FAERS Safety Report 8975786 (Version 1)
Quarter: 2012Q4

REPORT INFORMATION
  Report Type: Report from Study
  Country: JP (occurrence: JP)
  Receive Date: 20121219
  Receipt Date: 20121219
  Transmission Date: 20130627
  Serious: Yes (Other)
  Sender: FDA-Public Use
  Company Number: JP-ROCHE-681857

PATIENT
  Age: 42 Year
  Sex: Female

DRUGS (27)
  1. TOCILIZUMAB [Suspect]
     Indication: RHEUMATOID ARTHRITIS
     Route: 041
     Dates: start: 20090507, end: 20090507
  2. TOCILIZUMAB [Suspect]
     Route: 041
     Dates: start: 20090702, end: 20090702
  3. TOCILIZUMAB [Suspect]
     Route: 041
     Dates: start: 20090806, end: 20090806
  4. TOCILIZUMAB [Suspect]
     Route: 041
     Dates: start: 20090904, end: 20090904
  5. TOCILIZUMAB [Suspect]
     Route: 041
     Dates: start: 20091001, end: 20091001
  6. TOCILIZUMAB [Suspect]
     Route: 041
     Dates: start: 20091029, end: 20091029
  7. TOCILIZUMAB [Suspect]
     Route: 041
  8. PROGRAF [Concomitant]
     Route: 048
  9. RHEUMATREX [Concomitant]
     Route: 048
  10. RHEUMATREX [Concomitant]
     Route: 048
     Dates: start: 20090520, end: 20090524
  11. RHEUMATREX [Concomitant]
     Route: 048
  12. PREDNISOLONE [Concomitant]
     Dosage: DOSE FORM: ORAL FORMULATION (NOT OTHERWISE SPECIFIED)
     Route: 048
  13. PREDNISOLONE [Concomitant]
     Dosage: DOSE FORM: ORAL FORMULATION (NOT OTHERWISE SPECIFIED)
     Route: 048
     Dates: start: 20090520, end: 20090909
  14. PREDNISOLONE [Concomitant]
     Dosage: DOSE FORM: ORAL FORMULATION (NOT OTHERWISE SPECIFIED)
     Route: 048
     Dates: start: 20090910, end: 20090924
  15. PREDNISOLONE [Concomitant]
     Dosage: DOSE FORM: ORAL FORMULATION (NOT OTHERWISE SPECIFIED)
     Route: 048
  16. LOXONIN [Concomitant]
     Dosage: ORAL FORMULATION (NOT OTHERWISE SPECIFIED)
     Route: 048
  17. ZYRTEC [Concomitant]
     Route: 048
  18. MYSLEE [Concomitant]
     Route: 048
  19. GASLON N [Concomitant]
     Dosage: REPORTED DRUG NAME: GASLON N_OD(IRSOGLADINE MALEATE)
     Route: 048
  20. PARIET [Concomitant]
     Dosage: REPORTED DRUG NAME: PARIET(SODIUM RABEPRAZOLE)
     Route: 048
  21. PANTOSIN [Concomitant]
     Dosage: DOSE FORM: ORAL FORMULATION (NOT OTHERWISE SPECIFIED)
     Route: 048
  22. MAGNESIUM OXIDE [Concomitant]
     Route: 048
  23. URSO [Concomitant]
     Dosage: DOSE FORM: ORAL FORMULATION (NOT OTHERWISE SPECIFIED)
     Route: 048
  24. NEO-MINOPHAGEN C [Concomitant]
     Dosage: NAME:NEO-MINOPHAGEN C(GLYCYRRHIZIN_GLYCINE_CYSTEINE COMBINED DRUG),ROUTE:INJECTABLE (NOS)
     Route: 050
  25. FESIN [Concomitant]
     Dosage: NAME: FESIN(FERRIC OXIDE.SACCHARATED),ROUTE: INTRAVENOUS (NOT OTHERWISE SPECIFIED)
     Route: 050
  26. ANPLAG [Concomitant]
     Dosage: NAME: ANPLAG(SARPOGRELATE HYDROCHLORIDE),FORM: ORAL FORMULATION (NOT OTHERWISE SPECIFIED)
     Route: 048
  27. EPADEL [Concomitant]
     Dosage: NAME: EPADEL S(ETHYL ICOSAPENTATE)
     Route: 048

REACTIONS (7)
  - Hepatic function abnormal [Not Recovered/Not Resolved]
  - Pruritus [Recovered/Resolved]
  - Asthma [Recovered/Resolved]
  - Malaise [Recovered/Resolved]
  - Rash [Recovered/Resolved]
  - Acarodermatitis [Recovered/Resolved]
  - Upper respiratory tract inflammation [Recovered/Resolved]
